FAERS Safety Report 14587582 (Version 2)
Quarter: 2019Q2

REPORT INFORMATION
  Report Type: Spontaneous
  Country: US (occurrence: US)
  Receive Date: 20180301
  Receipt Date: 20190422
  Transmission Date: 20190711
  Serious: Yes (Hospitalization, Other)
  Sender: FDA-Public Use
  Company Number: US-CELLTRION INC.-2017US017417

PATIENT

DRUGS (27)
  1. MAGNESIUM [Concomitant]
     Active Substance: MAGNESIUM
     Dosage: 1,000 MG, PO, DAILY
     Route: 048
  2. ZOFRAN [Concomitant]
     Active Substance: ONDANSETRON HYDROCHLORIDE
     Dosage: 40 MG, TID (AS NEEDED)
     Route: 048
  3. CICLOPIROX. [Concomitant]
     Active Substance: CICLOPIROX
     Dosage: 1 APPL, BID
     Route: 061
  4. CEFTRIAXONE. [Concomitant]
     Active Substance: CEFTRIAXONE
     Indication: ARTHRITIS BACTERIAL
     Dosage: 2 G/50 ML INTRAVENOUS SOLUTION 2 G = 50 ML, IVPB, Q24H
     Route: 042
  5. PROTANDIM [Concomitant]
     Active Substance: DIETARY SUPPLEMENT
     Dosage: 1 DF, QD
     Route: 048
  6. FERROUS SULFATE. [Concomitant]
     Active Substance: FERROUS SULFATE
     Dosage: 325 MG (65 MG ELEMENTAL IRON)= 1 TAB, PO, BID
     Route: 048
  7. ZINC. [Concomitant]
     Active Substance: ZINC
     Dosage: 30 UNK, BID
  8. ZINC SULFATE [Concomitant]
     Active Substance: ZINC SULFATE\ZINC SULFATE ANHYDROUS
     Dosage: 220 MG, BID
     Route: 048
  9. METFORMIN [Concomitant]
     Active Substance: METFORMIN HYDROCHLORIDE
     Dosage: 1,000 MG = 2 TAB BID
     Route: 048
  10. PREDNISONE. [Concomitant]
     Active Substance: PREDNISONE
     Dosage: 5 MG ORAL TABLET 5 MG = 1 TAB, PO, Q AM
     Route: 048
  11. ASPIRIN                            /00002701/ [Concomitant]
     Active Substance: ASPIRIN
     Dosage: 81 MG, DAILY
     Route: 048
  12. TUMS ULTRA [Concomitant]
     Active Substance: CALCIUM CARBONATE
     Dosage: 1000 MG, DAILY
     Route: 048
  13. VITAMIN C [Concomitant]
     Active Substance: ASCORBIC ACID
     Dosage: 1000 MG, DAILY
     Route: 048
  14. VITAMIN D3 [Concomitant]
     Active Substance: CHOLECALCIFEROL
     Dosage: 1000 UNITS, DAILY
     Route: 048
  15. INFLECTRA [Suspect]
     Active Substance: INFLIXIMAB-DYYB
     Indication: RHEUMATOID ARTHRITIS
     Dosage: 200 MG
     Route: 042
     Dates: start: 20171027, end: 20171027
  16. ARAVA [Concomitant]
     Active Substance: LEFLUNOMIDE
     Dosage: 20 MG,1  TABLET, DAILY
     Route: 048
  17. PROBIOTIC 30 BILLION [Concomitant]
     Dosage: UNK, DAILY
     Route: 048
  18. LEFLUNOMIDE. [Concomitant]
     Active Substance: LEFLUNOMIDE
     Dosage: 20 MG, DAILY
     Route: 048
  19. GLUCOSAMINE CHONDROITIN            /01430901/ [Concomitant]
     Dosage: COMPLEX 500 MG
  20. BIOTIN [Concomitant]
     Active Substance: BIOTIN
     Dosage: 5000 MICROGRAM, DAILY
     Route: 048
  21. ASCORBIC ACID. [Concomitant]
     Active Substance: ASCORBIC ACID
     Dosage: 500 MG, DAILY
     Route: 048
  22. CALCIUM CARBONATE. [Concomitant]
     Active Substance: CALCIUM CARBONATE
     Dosage: 1000 MG, DAILY
     Route: 048
  23. METOPROLOL TARTRATE. [Concomitant]
     Active Substance: METOPROLOL TARTRATE
     Dosage: 6.25 MG, BID
     Route: 048
  24. PREDNISONE. [Concomitant]
     Active Substance: PREDNISONE
     Dosage: TABLET, 1 MG ORAL TABLET 2.5, PO, Q PM
     Route: 048
  25. PREDNISONE. [Concomitant]
     Active Substance: PREDNISONE
     Dosage: 7 MG, DAILY
  26. BACTROBAN [Concomitant]
     Active Substance: MUPIROCIN\MUPIROCIN CALCIUM
     Dosage: 2% TOPICAL OINTMENT 1 APPLY, TOPICAL, TID , OINTMENT
     Route: 061
  27. VITAMIN D                          /00107901/ [Concomitant]
     Active Substance: ERGOCALCIFEROL
     Dosage: 1,000 UNITS DAILY
     Route: 048

REACTIONS (5)
  - Arthritis bacterial [Recovered/Resolved]
  - Mental status changes [Unknown]
  - Gallbladder disorder [Unknown]
  - Pancreatitis acute [Unknown]
  - Transaminases increased [Unknown]

NARRATIVE: CASE EVENT DATE: 20171116
